FAERS Safety Report 8853731 (Version 8)
Quarter: 2013Q4

REPORT INFORMATION
  Report Type: Spontaneous
  Country: US (occurrence: US)
  Receive Date: 20121022
  Receipt Date: 20131002
  Transmission Date: 20140711
  Serious: Yes (Life-Threatening, Hospitalization, Other)
  Sender: FDA-Public Use
  Company Number: US-009507513-1210USA008945

PATIENT
  Sex: Male
  Weight: 81.63 kg

DRUGS (1)
  1. JANUVIA [Suspect]
     Indication: TYPE 2 DIABETES MELLITUS
     Dosage: 100 MG, QD
     Route: 048
     Dates: start: 20070709, end: 20110125

REACTIONS (67)
  - Ductal adenocarcinoma of pancreas [Unknown]
  - Pancreatectomy [Recovering/Resolving]
  - Prostate cancer [Unknown]
  - Prostatectomy [Unknown]
  - Malignant melanoma [Unknown]
  - Cholecystectomy [Recovering/Resolving]
  - Meningitis bacterial [Unknown]
  - Pancreatic abscess [Recovering/Resolving]
  - Splenectomy [Recovering/Resolving]
  - Confusional state [Unknown]
  - Spinal osteoarthritis [Recovering/Resolving]
  - Clostridium difficile infection [Unknown]
  - Renal failure chronic [Not Recovered/Not Resolved]
  - Pancreatitis [Unknown]
  - Renal failure acute [Unknown]
  - Hypercholesterolaemia [Unknown]
  - Sleep apnoea syndrome [Unknown]
  - Diabetes mellitus inadequate control [Unknown]
  - Venous insufficiency [Unknown]
  - Pain [Unknown]
  - Foot fracture [Recovered/Resolved]
  - Syncope [Unknown]
  - Arthritis [Unknown]
  - Radiotherapy to prostate [Unknown]
  - Deep vein thrombosis [Unknown]
  - Dyspnoea exertional [Unknown]
  - Cardiac murmur [Unknown]
  - Cholelithiasis [Unknown]
  - Insomnia [Unknown]
  - Depression [Unknown]
  - Urinary incontinence [Unknown]
  - Cognitive disorder [Unknown]
  - Dementia Alzheimer^s type [Unknown]
  - Drug effect increased [Unknown]
  - Deep vein thrombosis [Not Recovered/Not Resolved]
  - Chromaturia [Unknown]
  - Dizziness [Unknown]
  - Hypotension [Unknown]
  - Decreased appetite [Unknown]
  - Hypophagia [Unknown]
  - Dyspnoea [Unknown]
  - Joint stiffness [Unknown]
  - Pallor [Unknown]
  - Bradycardia [Unknown]
  - Muscular weakness [Unknown]
  - Dehydration [Unknown]
  - Osteoarthritis [Unknown]
  - Upper limb fracture [Unknown]
  - Rib fracture [Unknown]
  - Cancer surgery [Unknown]
  - Feeling cold [Unknown]
  - Insulin-requiring type 2 diabetes mellitus [Unknown]
  - Calculus ureteric [Unknown]
  - Nephrolithiasis [Unknown]
  - Diverticulum [Unknown]
  - Hepatic lesion [Unknown]
  - Cerebrovascular disorder [Unknown]
  - Biliary dilatation [Unknown]
  - Nephrolithiasis [Unknown]
  - Cardiomegaly [Unknown]
  - Aortic calcification [Unknown]
  - Oedema [Unknown]
  - Drug ineffective [Unknown]
  - Drug ineffective [Unknown]
  - Back pain [Unknown]
  - Pain in extremity [Unknown]
  - Constipation [Unknown]
